FAERS Safety Report 11225487 (Version 1)
Quarter: 2015Q2

REPORT INFORMATION
  Report Type: Spontaneous
  Country: US (occurrence: None)
  Receive Date: 20150626
  Receipt Date: 20150626
  Transmission Date: 20150821
  Serious: No
  Sender: FDA-Public Use
  Company Number: None

PATIENT
  Age: 62 Year
  Sex: Male

DRUGS (1)
  1. HUMIRA [Suspect]
     Active Substance: ADALIMUMAB
     Indication: RHEUMATOID ARTHRITIS
     Dates: start: 20150325

REACTIONS (4)
  - Blister [None]
  - Contusion [None]
  - Skin haemorrhage [None]
  - Skin atrophy [None]

NARRATIVE: CASE EVENT DATE: 20150525
